FAERS Safety Report 6209034-8 (Version None)
Quarter: 2009Q2

REPORT INFORMATION
  Report Type: 
  Country: None (occurrence: None)
  Receive Date: 20090529
  Receipt Date: 20090516
  Transmission Date: 20091009
  Serious: Yes (Other)
  Sender: FDA-Public Use
  Company Number: TW-PFIZER INC-2009215248

PATIENT
  Age: 35 Year

DRUGS (1)
  1. PHENYTOIN AND PHENYTOIN SODIUM [Suspect]

REACTIONS (13)
  - ALANINE AMINOTRANSFERASE INCREASED [None]
  - ASPARTATE AMINOTRANSFERASE INCREASED [None]
  - BLOOD ALBUMIN DECREASED [None]
  - BLOOD BILIRUBIN INCREASED [None]
  - BLOOD GLUCOSE INCREASED [None]
  - BLOOD POTASSIUM INCREASED [None]
  - BLOOD SODIUM DECREASED [None]
  - DRUG INTERACTION [None]
  - HYPOTENSION [None]
  - NODAL ARRHYTHMIA [None]
  - OVERDOSE [None]
  - PULMONARY TUBERCULOSIS [None]
  - THERAPEUTIC AGENT TOXICITY [None]
